FAERS Safety Report 6497014-7 (Version None)
Quarter: 2009Q4

REPORT INFORMATION
  Report Type: 
  Country: None (occurrence: None)
  Receive Date: 20091215
  Receipt Date: 20081230
  Transmission Date: 20100525
  Serious: No
  Sender: FDA-Public Use
  Company Number: A0762053A

PATIENT
  Age: 82 Year
  Sex: Male

DRUGS (5)
  1. AVODART [Suspect]
     Dosage: 1TAB PER DAY
     Route: 048
     Dates: start: 20080901
  2. ACIPHEX [Concomitant]
  3. LIPITOR [Concomitant]
  4. TRIAMTERENE AND HYDROCHLOROTHIAZIDE [Concomitant]
  5. SPIRONOLACTONE [Concomitant]

REACTIONS (1)
  - MYALGIA [None]
